FAERS Safety Report 6244036-7 (Version None)
Quarter: 2009Q2

REPORT INFORMATION
  Report Type: 
  Country: None (occurrence: None)
  Receive Date: 20090625
  Receipt Date: 20070926
  Transmission Date: 20091009
  Serious: Yes (Other)
  Sender: FDA-Public Use
  Company Number: US-ASTRAZENECA-2007UW18895

PATIENT
  Age: 19253 Day
  Sex: Male
  Weight: 84.4 kg

DRUGS (10)
  1. SEROQUEL [Suspect]
     Indication: SCHIZOPHRENIA
     Route: 048
     Dates: start: 20030209
  2. SEROQUEL [Suspect]
     Indication: BIPOLAR DISORDER
     Route: 048
     Dates: start: 20030209
  3. SEROQUEL [Suspect]
     Indication: DEPRESSION
     Route: 048
     Dates: start: 20030209
  4. SEROQUEL [Suspect]
     Route: 048
  5. SEROQUEL [Suspect]
     Route: 048
  6. SEROQUEL [Suspect]
     Route: 048
  7. RANITIDINE [Concomitant]
     Dates: start: 20030118
  8. LEVOXYL [Concomitant]
     Dates: start: 20040113
  9. ATENOLOL [Concomitant]
     Dates: start: 20040113
  10. REGLAN [Concomitant]
     Dates: start: 20040113

REACTIONS (4)
  - DIABETES MELLITUS [None]
  - DIABETES MELLITUS INADEQUATE CONTROL [None]
  - DIABETIC NEPHROPATHY [None]
  - TYPE 2 DIABETES MELLITUS [None]
